FAERS Safety Report 8122902-5 (Version None)
Quarter: 2012Q1

REPORT INFORMATION
  Report Type: 
  Country: None (occurrence: None)
  Receive Date: 20120208
  Receipt Date: 20120202
  Transmission Date: 20120608
  Serious: Yes (Hospitalization, Other)
  Sender: FDA-Public Use
  Company Number: AT-ABBOTT-12P-009-0897183-00

PATIENT
  Sex: Male
  Weight: 99 kg

DRUGS (3)
  1. MAROUMER [Concomitant]
     Indication: FACTOR V LEIDEN MUTATION
  2. HUMIRA [Suspect]
     Indication: CROHN'S DISEASE
     Route: 058
     Dates: start: 20110919, end: 20120117
  3. MAROUMER [Concomitant]
     Indication: DEEP VEIN THROMBOSIS

REACTIONS (4)
  - RASH GENERALISED [None]
  - DERMATITIS ATOPIC [None]
  - INTESTINAL STENOSIS [None]
  - RASH PUSTULAR [None]
